APPROVED DRUG PRODUCT: ZIDOVUDINE
Active Ingredient: ZIDOVUDINE
Strength: 300MG
Dosage Form/Route: TABLET;ORAL
Application: A090092 | Product #001 | TE Code: AB
Applicant: HETERO LABS LTD UNIT III
Approved: Apr 25, 2008 | RLD: No | RS: Yes | Type: RX